FAERS Safety Report 23219623 (Version 1)
Quarter: 2023Q4

REPORT INFORMATION
  Report Type: Spontaneous
  Country: US (occurrence: US)
  Receive Date: 20231122
  Receipt Date: 20231122
  Transmission Date: 20240110
  Serious: Yes (Other)
  Sender: FDA-Public Use
  Company Number: US-BAUSCHBL-2023BNL011723

PATIENT
  Sex: Female

DRUGS (1)
  1. CVS EYEWASH [Suspect]
     Active Substance: WATER
     Indication: Product used for unknown indication
     Route: 047

REACTIONS (2)
  - Blindness [Unknown]
  - Vision blurred [Unknown]
